FAERS Safety Report 6524810-X (Version None)
Quarter: 2010Q1

REPORT INFORMATION
  Report Type: 
  Country: None (occurrence: None)
  Receive Date: 20100104
  Receipt Date: 20100104
  Transmission Date: 20100710
  Serious: Yes (Death)
  Sender: FDA-Public Use
  Company Number: CA-ROXANE LABORATORIES, INC.-2009-DE-05557GD

PATIENT
  Age: 2 Year
  Sex: Male
  Weight: 13 kg

DRUGS (2)
  1. CODEINE [Suspect]
     Indication: PROCEDURAL PAIN
     Dosage: 10 TO 12.5 MG EVERY 4 TO 6 HOURS AS NEEDED.
     Route: 048
  2. PARACETAMOL [Concomitant]
     Indication: PROCEDURAL PAIN
     Dosage: 120 MG EVERY 4 TO 6 HOURS AS NEEDED
     Route: 048

REACTIONS (3)
  - ASPIRATION [None]
  - DRUG TOXICITY [None]
  - RESPIRATORY DEPRESSION [None]
